FAERS Safety Report 4729751-6 (Version None)
Quarter: 2005Q3

REPORT INFORMATION
  Report Type: 
  Country: None (occurrence: None)
  Receive Date: 20050728
  Receipt Date: 20050717
  Transmission Date: 20060218
  Serious: Yes (Other)
  Sender: FDA-Public Use
  Company Number: 2005104052

PATIENT
  Age: 52 Year
  Sex: Male

DRUGS (3)
  1. BEXTRA [Suspect]
     Indication: ARTHRITIS
     Dosage: 40 MG (20 MG, 2 IN 1 D)
  2. IMITREX [Concomitant]
  3. ALL OTHER THERAPEUTIC PRODUCTS [Concomitant]

REACTIONS (9)
  - CARDIOVASCULAR DISORDER [None]
  - HEADACHE [None]
  - HYDROCEPHALUS [None]
  - MEMORY IMPAIRMENT [None]
  - NERVOUSNESS [None]
  - PYREXIA [None]
  - TRANSIENT ISCHAEMIC ATTACK [None]
  - VISUAL ACUITY REDUCED [None]
  - WEIGHT DECREASED [None]
